FAERS Safety Report 4417611-X (Version None)
Quarter: 2004Q3

REPORT INFORMATION
  Report Type: 
  Country: None (occurrence: None)
  Receive Date: 20040803
  Receipt Date: 20040720
  Transmission Date: 20050211
  Serious: Yes (Death)
  Sender: FDA-Public Use
  Company Number: 02100-JPN-04-0211

PATIENT
  Age: 54 Year
  Sex: Female

DRUGS (7)
  1. CILOSTAZOL [Suspect]
     Dosage: 100 MG ORAL
     Route: 048
  2. EPOETIN BETA [Concomitant]
  3. CIMETIDINE [Concomitant]
  4. SENNOSIDE [Concomitant]
  5. PRECIPITATED CALCIUM CARBONATE [Concomitant]
  6. INSULIN [Concomitant]
  7. TEPRENONE [Concomitant]

REACTIONS (2)
  - CEREBRAL HAEMORRHAGE [None]
  - FALL [None]
